FAERS Safety Report 9268868 (Version 1)
Quarter: 2013Q2

REPORT INFORMATION
  Report Type: Spontaneous
  Country: DE (occurrence: DE)
  Receive Date: 20130503
  Receipt Date: 20130503
  Transmission Date: 20140414
  Serious: Yes (Other)
  Sender: FDA-Public Use
  Company Number: GXKR2013DE001684

PATIENT
  Sex: 0

DRUGS (2)
  1. PREDNISOLONE [Suspect]
     Indication: COLITIS ULCERATIVE
     Dosage: 75 MG TO 40 MG/ BREAK OF ORAL APPLICATION FORM GW7+2 UNTIL 10+2 BECAUSE PREDNISOLONE WAS GIVEN IV
     Route: 048
     Dates: start: 20120921, end: 20130105
  2. PREDNISOLON [Concomitant]
     Indication: COLITIS ULCERATIVE
     Dosage: 100 MG/D FROM 7.3 TO 10.2 GW
     Route: 042
     Dates: start: 20120929, end: 20121019

REACTIONS (2)
  - Abortion late [Recovered/Resolved]
  - Exposure during pregnancy [Unknown]
